FAERS Safety Report 19439973 (Version 1)
Quarter: 2021Q2

REPORT INFORMATION
  Report Type: Other
  Country: CN (occurrence: CN)
  Receive Date: 20210620
  Receipt Date: 20210620
  Transmission Date: 20210717
  Serious: Yes (Other)
  Sender: FDA-Public Use
  Company Number: CN-ROCHE-2848082

PATIENT
  Age: 42 Year
  Sex: Female
  Weight: 62 kg

DRUGS (18)
  1. HERCEPTIN [Suspect]
     Active Substance: TRASTUZUMAB
     Dosage: AT DAY 1,21 DAYS AS A CYCLE
     Route: 041
     Dates: start: 20180213
  2. LEVOTHYROXINE. [Suspect]
     Active Substance: LEVOTHYROXINE
     Dosage: 75 MCG D1 AND 100 MCG D2 ALTERNATELY
     Route: 048
     Dates: start: 201809
  3. HERCEPTIN [Suspect]
     Active Substance: TRASTUZUMAB
     Dosage: 21 DAYS AS A CYCLE
     Route: 041
     Dates: start: 20180306, end: 20181204
  4. PIRARUBICIN [Suspect]
     Active Substance: PIRARUBICIN
     Indication: BREAST CANCER
     Dosage: AT DAY1,21 DAYS AS A CYCLE
     Route: 041
     Dates: start: 20170901, end: 20171113
  5. LEVOTHYROXINE. [Suspect]
     Active Substance: LEVOTHYROXINE
     Route: 048
     Dates: start: 201810
  6. LEVOTHYROXINE. [Suspect]
     Active Substance: LEVOTHYROXINE
     Route: 048
     Dates: start: 201812
  7. CYCLOPHOSPHAMIDE. [Suspect]
     Active Substance: CYCLOPHOSPHAMIDE
     Indication: BREAST CANCER
     Dosage: AT DAY, 21 DAYS AS A CYCLE
     Route: 041
     Dates: start: 20170901, end: 20171113
  8. LEVOTHYROXINE. [Suspect]
     Active Substance: LEVOTHYROXINE
     Indication: HYPOTHYROIDISM
     Route: 048
     Dates: start: 2014
  9. LEVOTHYROXINE. [Suspect]
     Active Substance: LEVOTHYROXINE
     Dosage: 75 MCG D1 AND 100 MCG D2 ALTERNATELY
     Route: 048
     Dates: start: 201811
  10. HERCEPTIN [Suspect]
     Active Substance: TRASTUZUMAB
     Indication: BREAST CANCER
     Dosage: AT DAY 1,21 DAYS AS A CYCLE
     Route: 041
     Dates: start: 20171211
  11. DOCETAXEL. [Suspect]
     Active Substance: DOCETAXEL
     Dosage: AT DAY 2,21 DAYS AS A CYCLE
     Route: 041
     Dates: start: 20171211
  12. HERCEPTIN [Suspect]
     Active Substance: TRASTUZUMAB
     Dosage: AT DAY 1,21 DAYS AS A CYCLE
     Route: 041
     Dates: start: 20180102
  13. HERCEPTIN [Suspect]
     Active Substance: TRASTUZUMAB
     Dosage: AT DAY 1,21 DAYS AS A CYCLE
     Route: 041
     Dates: start: 20180123
  14. DOCETAXEL. [Suspect]
     Active Substance: DOCETAXEL
     Indication: BREAST CANCER
     Dosage: AT DAY1
     Route: 041
     Dates: start: 20171113
  15. DOCETAXEL. [Suspect]
     Active Substance: DOCETAXEL
     Dosage: AT DAY 2,21 DAYS AS A CYCLE
     Route: 041
     Dates: start: 20180102
  16. DOCETAXEL. [Suspect]
     Active Substance: DOCETAXEL
     Dosage: AT DAY 2,21 DAYS AS A CYCLE
     Route: 041
     Dates: start: 20180123
  17. DOCETAXEL. [Suspect]
     Active Substance: DOCETAXEL
     Dosage: AT DAY 2,21 DAYS AS A CYCLE
     Route: 041
     Dates: start: 20180213
  18. LEVOTHYROXINE. [Suspect]
     Active Substance: LEVOTHYROXINE
     Route: 048
     Dates: start: 201808

REACTIONS (4)
  - Asthenia [Recovered/Resolved]
  - Hypothyroidism [Recovered/Resolved]
  - Myelosuppression [Recovering/Resolving]
  - Drug interaction [Unknown]
